FAERS Safety Report 7460257-X (Version None)
Quarter: 2011Q2

REPORT INFORMATION
  Report Type: 
  Country: None (occurrence: None)
  Receive Date: 20110505
  Receipt Date: 20110408
  Transmission Date: 20111010
  Serious: Yes (Life-Threatening, Other)
  Sender: FDA-Public Use
  Company Number: US-BAYER-200943687NA

PATIENT
  Age: 31 Year
  Sex: Female
  Weight: 120.18 kg

DRUGS (2)
  1. MARIJUANA [Concomitant]
  2. YAZ [Suspect]
     Indication: CONTRACEPTION
     Dosage: 1 DF (DAILY DOSE), QD, ORAL
     Route: 048

REACTIONS (5)
  - PULMONARY EMBOLISM [None]
  - THROMBOPHLEBITIS SUPERFICIAL [None]
  - ACNE [None]
  - ALOPECIA [None]
  - DEEP VEIN THROMBOSIS [None]
